FAERS Safety Report 13711247 (Version 1)
Quarter: 2017Q3

REPORT INFORMATION
  Report Type: Spontaneous
  Country: US (occurrence: US)
  Receive Date: 20170703
  Receipt Date: 20170703
  Transmission Date: 20171127
  Serious: Yes (Other)
  Sender: FDA-Public Use
  Company Number: US-PARI RESPIRATORY EQUIPMENT, INC.-2017PAR00010

PATIENT
  Age: 60 Year
  Sex: Male

DRUGS (13)
  1. FENOFIBRATE. [Concomitant]
     Active Substance: FENOFIBRATE
  2. COREG [Concomitant]
     Active Substance: CARVEDILOL
  3. TOBRAMYCIN. [Concomitant]
     Active Substance: TOBRAMYCIN
  4. LISINOPRIL. [Concomitant]
     Active Substance: LISINOPRIL
  5. PRILOSEC [Concomitant]
     Active Substance: OMEPRAZOLE MAGNESIUM
  6. BREO ELLIPTA [Concomitant]
     Active Substance: FLUTICASONE FUROATE\VILANTEROL TRIFENATATE
  7. ALBUTEROL. [Concomitant]
     Active Substance: ALBUTEROL
  8. PROAIR HFA [Concomitant]
     Active Substance: ALBUTEROL SULFATE
  9. KITABIS PAK [Suspect]
     Active Substance: TOBRAMYCIN
     Indication: CYSTIC FIBROSIS
     Dosage: 300 MG, 2X/DAY
     Route: 055
     Dates: start: 20170318
  10. ATORVASTATIN [Concomitant]
     Active Substance: ATORVASTATIN
  11. PROZAC [Concomitant]
     Active Substance: FLUOXETINE HYDROCHLORIDE
  12. GLIPIZIDE. [Concomitant]
     Active Substance: GLIPIZIDE
  13. METFORMIN [Concomitant]
     Active Substance: METFORMIN HYDROCHLORIDE

REACTIONS (2)
  - Fatigue [Unknown]
  - Dyspnoea [Unknown]

NARRATIVE: CASE EVENT DATE: 201704
